FAERS Safety Report 8892032 (Version 2)
Quarter: 2013Q1

REPORT INFORMATION
  Report Type: Spontaneous
  Country: US (occurrence: None)
  Receive Date: 20121031
  Receipt Date: 20121205
  Transmission Date: 20140127
  Serious: Yes (Other)
  Sender: FDA-Public Use
  Company Number: CRC-12-520

PATIENT
  Sex: Male
  Weight: 65.77 kg

DRUGS (2)
  1. SUMATRIPTAN SUCCINATE [Suspect]
     Indication: MIGRAINE
     Dosage: 2 INJECTIONS 2X/WEEK; SQ
     Route: 058
     Dates: start: 2009
  2. HYDROCODONE [Concomitant]

REACTIONS (5)
  - Asthenia [None]
  - Temperature intolerance [None]
  - Blood testosterone decreased [None]
  - Blood oestrogen increased [None]
  - Pituitary tumour [None]
